FAERS Safety Report 9245315 (Version 2)
Quarter: 2013Q2

REPORT INFORMATION
  Report Type: Spontaneous
  Country: JP (occurrence: JP)
  Receive Date: 20130422
  Receipt Date: 20130429
  Transmission Date: 20140414
  Serious: Yes (Other)
  Sender: FDA-Public Use
  Company Number: JP-JNJFOC-20130409204

PATIENT
  Age: 58 Year
  Sex: Female

DRUGS (15)
  1. REMICADE [Suspect]
     Indication: RHEUMATOID VASCULITIS
     Route: 042
     Dates: start: 201007
  2. REMICADE [Suspect]
     Indication: RHEUMATOID VASCULITIS
     Route: 042
  3. REMICADE [Suspect]
     Indication: RHEUMATOID VASCULITIS
     Route: 042
  4. REMICADE [Suspect]
     Indication: RHEUMATOID VASCULITIS
     Route: 042
     Dates: start: 201103, end: 201103
  5. RHEUMATREX [Suspect]
     Indication: RHEUMATOID VASCULITIS
     Route: 065
     Dates: start: 201007
  6. RHEUMATREX [Suspect]
     Indication: RHEUMATOID VASCULITIS
     Route: 065
     Dates: start: 2000
  7. IMURAN [Suspect]
     Indication: RHEUMATOID VASCULITIS
     Route: 065
     Dates: start: 201112, end: 201209
  8. PREDNISOLONE [Concomitant]
     Indication: RHEUMATOID VASCULITIS
     Route: 065
  9. PREDNISOLONE [Concomitant]
     Indication: RHEUMATOID VASCULITIS
     Route: 065
  10. PREDNISOLONE [Concomitant]
     Indication: RHEUMATOID VASCULITIS
     Route: 065
  11. PREDNISOLONE [Concomitant]
     Indication: RHEUMATOID VASCULITIS
     Route: 065
     Dates: start: 2012
  12. PREDNISOLONE [Concomitant]
     Indication: RHEUMATOID VASCULITIS
     Route: 065
  13. PREDNISOLONE [Concomitant]
     Indication: RHEUMATOID VASCULITIS
     Route: 065
     Dates: start: 201103
  14. MIZORIBINE [Concomitant]
     Indication: RHEUMATOID VASCULITIS
     Route: 065
     Dates: start: 201110
  15. ETANERCEPT [Concomitant]
     Indication: RHEUMATOID VASCULITIS
     Route: 065
     Dates: start: 201112

REACTIONS (3)
  - Diffuse large B-cell lymphoma [Unknown]
  - Drug ineffective [Unknown]
  - Infection [Unknown]
